FAERS Safety Report 20302830 (Version 1)
Quarter: 2022Q1

REPORT INFORMATION
  Report Type: Other
  Country: US (occurrence: None)
  Receive Date: 20220106
  Receipt Date: 20220106
  Transmission Date: 20220423
  Serious: Yes (Other)
  Sender: FDA-Public Use
  Company Number: US-ROCHE-2991752

PATIENT
  Sex: Male

DRUGS (7)
  1. XELODA [Suspect]
     Active Substance: CAPECITABINE
     Indication: Colorectal cancer metastatic
     Dosage: TAKE 4 TABLET(S) BY MOUTH IN THE MORNING AND TAKE 3 TABLET(S) BY MOUTH IN THE EVENING 2 WEEK(S) ON,
     Route: 048
  2. XELODA [Suspect]
     Active Substance: CAPECITABINE
     Indication: Colon cancer
  3. XELODA [Suspect]
     Active Substance: CAPECITABINE
     Indication: Metastases to liver
  4. XELODA [Suspect]
     Active Substance: CAPECITABINE
     Indication: Cholangiocarcinoma
  5. XELODA [Suspect]
     Active Substance: CAPECITABINE
     Indication: Colorectal cancer metastatic
  6. METOPROLOL [Concomitant]
     Active Substance: METOPROLOL
  7. ENOXAPARIN SODIUM [Concomitant]
     Active Substance: ENOXAPARIN SODIUM

REACTIONS (1)
  - Metastases to liver [Unknown]
